FAERS Safety Report 7656099-2 (Version None)
Quarter: 2011Q3

REPORT INFORMATION
  Report Type: 
  Country: None (occurrence: None)
  Receive Date: 20110804
  Receipt Date: 20110729
  Transmission Date: 20111222
  Serious: Yes (Death, Other)
  Sender: FDA-Public Use
  Company Number: NZ-PFIZER INC-2011176360

PATIENT

DRUGS (1)
  1. GABAPENTIN [Suspect]
     Dosage: UNK

REACTIONS (5)
  - MYOCARDIAL INFARCTION [None]
  - ENCEPHALOPATHY [None]
  - DYSPHAGIA [None]
  - HEPATIC FUNCTION ABNORMAL [None]
  - MUSCLE TWITCHING [None]
